FAERS Safety Report 16917804 (Version 1)
Quarter: 2019Q4

REPORT INFORMATION
  Report Type: Spontaneous
  Country: GB (occurrence: GB)
  Receive Date: 20191015
  Receipt Date: 20191015
  Transmission Date: 20200122
  Serious: Yes (Disabling)
  Sender: FDA-Public Use
  Company Number: GB-TEVA-2019-GB-1120767

PATIENT
  Age: 72 Year
  Sex: Female
  Weight: 68 kg

DRUGS (8)
  1. CALCICHEW D3 [Concomitant]
     Active Substance: CALCIUM\CHOLECALCIFEROL
     Dosage: TAKE ONE 2 TIMES/DAY 2 DOSAGE FORM
     Dates: start: 20181204
  2. PARACETAMOL [Concomitant]
     Active Substance: ACETAMINOPHEN
     Dosage: TAKE 2 4 TIMES/DAY
     Dates: start: 20181204
  3. SELEGILINE HYDROCHLORIDE. [Concomitant]
     Active Substance: SELEGILINE HYDROCHLORIDE
     Dosage: 4 DOSAGE FORM
     Dates: start: 20181204
  4. ACULAR [Concomitant]
     Active Substance: KETOROLAC TROMETHAMINE
     Dosage: DROP 3 GTT
     Dates: start: 20190613, end: 20190704
  5. DIAZEPAM. [Concomitant]
     Active Substance: DIAZEPAM
     Dosage: TAKE ONE TO TWO UP TO THREE TIMES A DAY...
     Dates: start: 20181204
  6. SUMATRIPTAN. [Concomitant]
     Active Substance: SUMATRIPTAN
     Dosage: TAKE AS DIRECTED AS SHOWN ON THE PACK
     Dates: start: 20181204
  7. AMITRIPTYLINE HYDROCHLORIDE. [Concomitant]
     Active Substance: AMITRIPTYLINE HYDROCHLORIDE
     Dosage: EVERY EVENING 2 HOURS BEFORE BEDTIME 1 DOSAGE FORM
     Dates: start: 20181204
  8. NITROFURANTOIN. [Suspect]
     Active Substance: NITROFURANTOIN
     Dosage: 200 MG
     Dates: start: 20190827, end: 20190830

REACTIONS (1)
  - Monoplegia [Recovered/Resolved]

NARRATIVE: CASE EVENT DATE: 20190906
